FAERS Safety Report 7794683-6 (Version None)
Quarter: 2011Q3

REPORT INFORMATION
  Report Type: 
  Country: None (occurrence: None)
  Receive Date: 20110930
  Receipt Date: 20110916
  Transmission Date: 20111222
  Serious: Yes (Death)
  Sender: FDA-Public Use
  Company Number: DSA_47698_2011

PATIENT
  Age: 82 Year
  Sex: Female

DRUGS (2)
  1. ENALAPRIL MALEATE [Suspect]
     Indication: PRODUCT USED FOR UNKNOWN INDICATION
     Dosage: (2.5 MG (FREQUENCY UNKNWN) ORAL)
     Route: 048
  2. ENALAPRIL MALEATE [Suspect]
     Indication: PRODUCT USED FOR UNKNOWN INDICATION
     Dosage: (10/25 MG (FREQUENCY UNKNOWN) ORAL)
     Route: 048

REACTIONS (1)
  - DRUG DISPENSING ERROR [None]
